FAERS Safety Report 12118425 (Version 1)
Quarter: 2016Q1

REPORT INFORMATION
  Report Type: Spontaneous
  Country: US (occurrence: None)
  Receive Date: 20160224
  Receipt Date: 20160224
  Transmission Date: 20160526
  Serious: Yes (Life-Threatening, Hospitalization, Disabling, Other)
  Sender: FDA-Public Use
  Company Number: None

PATIENT
  Sex: Male

DRUGS (5)
  1. LITHIUM. [Suspect]
     Active Substance: LITHIUM
  2. GEODON [Suspect]
     Active Substance: ZIPRASIDONE HYDROCHLORIDE\ZIPRASIDONE MESYLATE
  3. RISPERIDAL [Suspect]
     Active Substance: RISPERIDONE
  4. SEROQUEL [Suspect]
     Active Substance: QUETIAPINE FUMARATE
  5. HALDOL [Suspect]
     Active Substance: HALOPERIDOL
     Dosage: 400 MG REGULAR 2 3 TIMES A DAY MOUTH OR INJECTION
     Route: 048
     Dates: start: 20150414

REACTIONS (3)
  - Furuncle [None]
  - Victim of sexual abuse [None]
  - Injury [None]

NARRATIVE: CASE EVENT DATE: 20150414
